FAERS Safety Report 22381822 (Version 1)
Quarter: 2023Q2

REPORT INFORMATION
  Report Type: Report from Study
  Country: NL (occurrence: NL)
  Receive Date: 20230530
  Receipt Date: 20230530
  Transmission Date: 20230722
  Serious: Yes (Other)
  Sender: FDA-Public Use
  Company Number: NL-ABBVIE-4266891

PATIENT
  Sex: Female

DRUGS (21)
  1. CARBIDOPA\LEVODOPA [Suspect]
     Active Substance: CARBIDOPA\LEVODOPA
     Indication: Parkinson^s disease
     Dosage: MD: 12.0 ML, CD 5.7 ML/HR; ED 3.0 ML, CND: 2.7 ML/HR
     Route: 050
  2. CARBIDOPA\LEVODOPA [Suspect]
     Active Substance: CARBIDOPA\LEVODOPA
     Route: 050
  3. CARBIDOPA\LEVODOPA [Suspect]
     Active Substance: CARBIDOPA\LEVODOPA
     Dosage: ND: 10.0 ML, END: 3.0 ML, CND: 2.8 ML/HR
     Route: 050
  4. CARBIDOPA\LEVODOPA [Suspect]
     Active Substance: CARBIDOPA\LEVODOPA
     Dosage: CD 5.7 ML/HR; ED 3.0 ML, CND: 2.8 ML/HR
  5. CARBIDOPA\LEVODOPA [Suspect]
     Active Substance: CARBIDOPA\LEVODOPA
     Dosage: ND: 10.0 ML, END: 3.0 ML, CND: 2.7 ML/HR,
     Route: 050
  6. CARBIDOPA\LEVODOPA [Suspect]
     Active Substance: CARBIDOPA\LEVODOPA
     Route: 050
     Dates: start: 20170619
  7. CARBIDOPA\LEVODOPA [Suspect]
     Active Substance: CARBIDOPA\LEVODOPA
     Dosage: CD 5.7 ML/HR; ED 3.0 ML
     Route: 050
  8. CARBIDOPA\LEVODOPA [Suspect]
     Active Substance: CARBIDOPA\LEVODOPA
     Dosage: CD 5.7 ML/HR; ED 3.0 ML, CND: 2.8 ML/HR
     Route: 050
  9. CARBIDOPA\LEVODOPA [Suspect]
     Active Substance: CARBIDOPA\LEVODOPA
     Dosage: ND: 10.0 ML, END: 3.0 ML, CND: 2.7 ML/HR,
  10. CLOZAPINE [Concomitant]
     Active Substance: CLOZAPINE
     Indication: Hallucination
  11. PROPRANOLOL [Concomitant]
     Active Substance: PROPRANOLOL HYDROCHLORIDE
     Indication: Product used for unknown indication
  12. OXYCODONE [Concomitant]
     Active Substance: OXYCODONE
     Indication: Product used for unknown indication
  13. DICLOFENAC [Concomitant]
     Active Substance: DICLOFENAC
     Indication: Product used for unknown indication
  14. INSULIN NOS [Concomitant]
     Active Substance: INSULIN NOS
     Indication: Product used for unknown indication
  15. PANTOPRAZOLE [Concomitant]
     Active Substance: PANTOPRAZOLE
     Indication: Product used for unknown indication
  16. RANITIDINE [Concomitant]
     Active Substance: RANITIDINE
     Indication: Product used for unknown indication
  17. ESCITALOPRAM [Concomitant]
     Active Substance: ESCITALOPRAM OXALATE
     Indication: Product used for unknown indication
  18. POLYETHYLENE GLYCOLS [Concomitant]
     Active Substance: POLYETHYLENE GLYCOLS
     Indication: Bowel movement irregularity
  19. PREDNISONE [Concomitant]
     Active Substance: PREDNISONE
     Indication: Chronic obstructive pulmonary disease
  20. SIMVASTATIN [Concomitant]
     Active Substance: SIMVASTATIN
     Indication: Product used for unknown indication
  21. CARBOHYDRATES\FATTY ACIDS\MINERALS\PROTEIN\VITAMINS [Suspect]
     Active Substance: CARBOHYDRATES\FATTY ACIDS\MINERALS\PROTEIN\VITAMINS
     Indication: Decreased appetite
     Dosage: TIME INTERVAL: 0.16666667 DAYS
     Route: 048

REACTIONS (31)
  - Cerebrovascular accident [Unknown]
  - Pain [Not Recovered/Not Resolved]
  - Decubitus ulcer [Not Recovered/Not Resolved]
  - Muscle spasms [Not Recovered/Not Resolved]
  - Epistaxis [Recovered/Resolved]
  - Cognitive disorder [Not Recovered/Not Resolved]
  - Pain [Not Recovered/Not Resolved]
  - Anosmia [Not Recovered/Not Resolved]
  - Dyskinesia [Not Recovered/Not Resolved]
  - Decubitus ulcer [Recovered/Resolved]
  - On and off phenomenon [Not Recovered/Not Resolved]
  - Musculoskeletal stiffness [Not Recovered/Not Resolved]
  - Mobility decreased [Not Recovered/Not Resolved]
  - Weight increased [Not Recovered/Not Resolved]
  - Decubitus ulcer [Recovered/Resolved]
  - Hallucination [Not Recovered/Not Resolved]
  - Mobility decreased [Not Recovered/Not Resolved]
  - Sleep deficit [Not Recovered/Not Resolved]
  - Dyskinesia [Not Recovered/Not Resolved]
  - Ageusia [Not Recovered/Not Resolved]
  - Dysphagia [Not Recovered/Not Resolved]
  - Muscle rigidity [Not Recovered/Not Resolved]
  - Diarrhoea [Not Recovered/Not Resolved]
  - Memory impairment [Not Recovered/Not Resolved]
  - Freezing phenomenon [Not Recovered/Not Resolved]
  - Gait disturbance [Recovered/Resolved]
  - Decreased appetite [Not Recovered/Not Resolved]
  - Decubitus ulcer [Recovered/Resolved]
  - Epistaxis [Recovered/Resolved]
  - Fatigue [Not Recovered/Not Resolved]
  - Musculoskeletal stiffness [Not Recovered/Not Resolved]

NARRATIVE: CASE EVENT DATE: 20230103
